FAERS Safety Report 4338759-4 (Version None)
Quarter: 2004Q2

REPORT INFORMATION
  Report Type: 
  Country: None (occurrence: None)
  Receive Date: 20040409
  Receipt Date: 20040405
  Transmission Date: 20050107
  Serious: No
  Sender: FDA-Public Use
  Company Number: 2003190058US

PATIENT
  Age: 76 Year
  Sex: Female

DRUGS (2)
  1. ELLENCE [Suspect]
     Indication: BREAST CANCER
     Dosage: 170 MG, CYCLIC, Q 21 DAYS X 4, IV
     Route: 042
     Dates: start: 20031120, end: 20031120
  2. CYTOXAN [Concomitant]

REACTIONS (4)
  - CATHETER SITE INFECTION [None]
  - MEDICAL DEVICE COMPLICATION [None]
  - STAPHYLOCOCCAL INFECTION [None]
  - THROMBOSIS [None]
